FAERS Safety Report 8225772-X (Version None)
Quarter: 2012Q1

REPORT INFORMATION
  Report Type: 
  Country: None (occurrence: None)
  Receive Date: 20120321
  Receipt Date: 20120312
  Transmission Date: 20120608
  Serious: Yes (Hospitalization, Other)
  Sender: FDA-Public Use
  Company Number: CO-ELI_LILLY_AND_COMPANY-CO201112000886

PATIENT
  Age: 68 Year
  Sex: Female

DRUGS (13)
  1. OMEPRAZOLE [Concomitant]
  2. SULFASALAZINE [Concomitant]
     Dosage: 500 MG, UNK
  3. VYTORIN [Concomitant]
  4. ENALAPRIL [Concomitant]
  5. PREDNISOLONE [Concomitant]
  6. JANUVIA [Concomitant]
     Indication: DRUG THERAPY
  7. FORTEO [Suspect]
     Dosage: 20 UG, QD
     Route: 058
     Dates: start: 20111201
  8. METOPROLOL SUCCINATE [Concomitant]
  9. METHOTREXATE [Concomitant]
  10. ASPIRIN [Concomitant]
  11. PAROXETINE HCL [Concomitant]
  12. FORTEO [Suspect]
     Indication: OSTEOPOROSIS
     Dosage: 20 UG, QD
     Route: 058
     Dates: start: 20100711, end: 20111028
  13. BIOCALCIUM D3 [Concomitant]
     Indication: SUPPLEMENTATION THERAPY

REACTIONS (8)
  - ANXIETY [None]
  - BLOOD POTASSIUM DECREASED [None]
  - LOSS OF CONSCIOUSNESS [None]
  - SPEECH DISORDER [None]
  - ABNORMAL BEHAVIOUR [None]
  - HALLUCINATION [None]
  - STRESS [None]
  - BLOOD SODIUM DECREASED [None]
